FAERS Safety Report 13127516 (Version 2)
Quarter: 2019Q1

REPORT INFORMATION
  Report Type: Report from Study
  Country: DE (occurrence: DE)
  Receive Date: 20170118
  Receipt Date: 20190130
  Transmission Date: 20190417
  Serious: Yes (Death, Hospitalization, Other)
  Sender: FDA-Public Use
  Company Number: DE-INCYTE CORPORATION-2016IN006118

PATIENT

DRUGS (6)
  1. INCB018424 [Suspect]
     Active Substance: RUXOLITINIB
     Dosage: 20 MG/DAY/TWICE
     Route: 048
     Dates: start: 20160627
  2. INCB018424 [Suspect]
     Active Substance: RUXOLITINIB
     Indication: MYELOFIBROSIS
     Dosage: UNK
     Route: 048
     Dates: start: 20160502
  3. ELIQUIS [Suspect]
     Active Substance: APIXABAN
     Indication: THROMBOSIS
     Dosage: 5 OT, QD
     Route: 065
     Dates: start: 20150311, end: 20160627
  4. METOPROLOL. [Concomitant]
     Active Substance: METOPROLOL
     Indication: HYPERTENSION
     Dosage: 95 OT, QD
     Route: 065
  5. AMLODIPINE [Concomitant]
     Active Substance: AMLODIPINE BESYLATE
     Indication: HYPERTENSION
     Dosage: 5 OT, QD
     Route: 065
  6. RAMIPRIL. [Concomitant]
     Active Substance: RAMIPRIL
     Indication: HYPERTENSION
     Dosage: 5 OT, QD
     Route: 065

REACTIONS (11)
  - Haematoma [Recovered/Resolved]
  - Thrombocytopenia [Unknown]
  - Red cell distribution width increased [Unknown]
  - Blood calcium decreased [Unknown]
  - Blood creatinine increased [Unknown]
  - Acute myeloid leukaemia [Recovering/Resolving]
  - General physical health deterioration [Fatal]
  - Abscess limb [Not Recovered/Not Resolved]
  - C-reactive protein increased [Unknown]
  - Blood alkaline phosphatase increased [Unknown]
  - Myelodysplastic syndrome [Fatal]

NARRATIVE: CASE EVENT DATE: 20160627
